FAERS Safety Report 24807616 (Version 1)
Quarter: 2025Q1

REPORT INFORMATION
  Report Type: Spontaneous
  Country: US (occurrence: US)
  Receive Date: 20250105
  Receipt Date: 20250105
  Transmission Date: 20250409
  Serious: Yes (Hospitalization)
  Sender: PRINSTON PHARMACEUTICAL
  Company Number: US-PRINSTON PHARMACEUTICAL INC.-2024PRN00475

PATIENT
  Age: 40 Year
  Sex: Female

DRUGS (1)
  1. PHENTERMINE HYDROCHLORIDE [Suspect]
     Active Substance: PHENTERMINE HYDROCHLORIDE
     Indication: Weight decreased

REACTIONS (1)
  - Colitis ischaemic [Recovered/Resolved]
